FAERS Safety Report 6245087-9 (Version None)
Quarter: 2009Q2

REPORT INFORMATION
  Report Type: 
  Country: None (occurrence: None)
  Receive Date: 20090625
  Receipt Date: 20090615
  Transmission Date: 20091009
  Serious: Yes (Hospitalization)
  Sender: FDA-Public Use
  Company Number: JP-ROCHE-596942

PATIENT
  Sex: Male
  Weight: 76 kg

DRUGS (11)
  1. CELLCEPT [Suspect]
     Indication: PROPHYLAXIS AGAINST TRANSPLANT REJECTION
     Route: 048
     Dates: start: 20001029, end: 20050101
  2. CELLCEPT [Suspect]
     Route: 048
     Dates: start: 20050101
  3. CELLCEPT [Suspect]
     Route: 048
     Dates: end: 20070702
  4. PROGRAF [Concomitant]
     Route: 048
     Dates: start: 20001001
  5. CLARUTE [Concomitant]
     Dosage: DRUG; CLARUTE R
     Route: 048
  6. ENALAPRIL MALEATE [Concomitant]
     Route: 048
  7. ALLOZYM [Concomitant]
     Route: 048
  8. GLIMICRON [Concomitant]
     Route: 048
  9. FAMOTIDINE [Concomitant]
     Dosage: FORM: ORAL FORMULATION
     Route: 048
  10. LIPITOR [Concomitant]
     Route: 048
  11. BAKTAR [Concomitant]
     Dosage: FORM: ORAL FORMULATION
     Route: 048

REACTIONS (2)
  - DIARRHOEA [None]
  - ERYTHEMA NODOSUM [None]
